FAERS Safety Report 5906318-5 (Version None)
Quarter: 2008Q4

REPORT INFORMATION
  Report Type: 
  Country: None (occurrence: None)
  Receive Date: 20081002
  Receipt Date: 20080520
  Transmission Date: 20090506
  Serious: No
  Sender: FDA-Public Use
  Company Number: US-ABBOTT-08P-163-0455666-00

PATIENT
  Age: 42 Year
  Sex: Female

DRUGS (1)
  1. TRICOR [Suspect]
     Indication: BLOOD TRIGLYCERIDES INCREASED
     Dosage: NOT REPORTED

REACTIONS (2)
  - MUSCULAR WEAKNESS [None]
  - PAIN IN JAW [None]
